FAERS Safety Report 8855399 (Version 1)
Quarter: 2012Q4

REPORT INFORMATION
  Report Type: 
  Country: US (occurrence: US)
  Receive Date: 20121023
  Receipt Date: 20121023
  Transmission Date: 20130627
  Serious: No
  Sender: FDA-Public Use
  Company Number: US-AMGEN-USASP2012056799

PATIENT
  Age: 42 Year
  Sex: Male
  Weight: 74.83 kg

DRUGS (9)
  1. ENBREL [Suspect]
     Indication: ANKYLOSING SPONDYLITIS
     Dosage: 50 mg, qwk
     Route: 058
     Dates: start: 201206
  2. CITALOPRAM [Concomitant]
     Dosage: 20 mg, qd
     Route: 048
  3. FLUTICASONE [Concomitant]
     Dosage: 0.05 mg, /inh,UNK
     Route: 045
  4. FOLIC ACID [Concomitant]
     Dosage: 1 mg, qd
     Route: 048
  5. HYDROXYCHLOROQUINE [Concomitant]
     Dosage: 200 mg, bid
     Route: 048
  6. PREDNISONE [Concomitant]
     Dosage: 10 mg, qd
     Route: 048
  7. PRILOSEC                           /00661201/ [Concomitant]
     Dosage: 20 mg, qd
     Route: 048
  8. RANITIDINE [Concomitant]
     Dosage: 150 mg, bid prn
     Route: 048
  9. TIZANIDIN ACTAVIS [Concomitant]
     Dosage: 4 mg, tid
     Route: 048

REACTIONS (8)
  - Headache [Not Recovered/Not Resolved]
  - Fatigue [Not Recovered/Not Resolved]
  - Dehydration [Not Recovered/Not Resolved]
  - Neck pain [Unknown]
  - Groin pain [Unknown]
  - Musculoskeletal stiffness [Unknown]
  - Arthralgia [Unknown]
  - Pain [Unknown]
